FAERS Safety Report 8697744 (Version 3)
Quarter: 2013Q2

REPORT INFORMATION
  Report Type: Spontaneous
  Country: US (occurrence: US)
  Receive Date: 20120801
  Receipt Date: 20130522
  Transmission Date: 20140414
  Serious: No
  Sender: FDA-Public Use
  Company Number: US-009507513-1207USA009504

PATIENT
  Age: 75 Year
  Sex: Male

DRUGS (7)
  1. SINGULAIR [Suspect]
     Indication: ASTHMA
     Dosage: 10 MG, QD
     Route: 048
     Dates: start: 20120322, end: 201204
  2. PRAVASTATIN SODIUM [Concomitant]
  3. FLUTICASONE [Concomitant]
  4. PROPIONATE DE SODIUM [Concomitant]
  5. ALBUTEROL [Concomitant]
  6. PULMICORT [Concomitant]
  7. TIMOLOL MALEATE [Concomitant]
     Indication: ASTHMA

REACTIONS (3)
  - Drug ineffective [Recovered/Resolved]
  - Agitation [Recovered/Resolved]
  - Cardiac flutter [Recovered/Resolved]
